FAERS Safety Report 14146386 (Version 1)
Quarter: 2017Q4

REPORT INFORMATION
  Report Type: Spontaneous
  Country: US (occurrence: None)
  Receive Date: 20171031
  Receipt Date: 20171031
  Transmission Date: 20180321
  Serious: Yes (Other)
  Sender: FDA-Public Use
  Company Number: None

PATIENT
  Sex: Female
  Weight: 24.9 kg

DRUGS (1)
  1. LEVETIRACETAM 100MG/ML SOLUTION [Suspect]
     Active Substance: LEVETIRACETAM
     Indication: SEIZURE
     Dosage: 6 ML BID VIA GTUBE
     Dates: start: 2011

REACTIONS (2)
  - Product substitution issue [None]
  - Seizure [None]
